FAERS Safety Report 8965578 (Version 1)
Quarter: 2012Q4

REPORT INFORMATION
  Report Type: Spontaneous
  Country: SZ (occurrence: None)
  Receive Date: 20121205
  Receipt Date: 20121205
  Transmission Date: 20130627
  Serious: Yes (Hospitalization, Other)
  Sender: FDA-Public Use
  Company Number: DAV-AE-MTX-12-78

PATIENT
  Age: 47 Year
  Sex: Female

DRUGS (1)
  1. METHOTREXATE [Suspect]
     Indication: GASTROINTESTINAL DISORDER
     Dosage: 14DAY CYCLE: Days 1, 3, 5, 7
     Route: 030

REACTIONS (3)
  - Peritonitis [None]
  - Stomatitis [None]
  - Ascites [None]
